FAERS Safety Report 6523272-6 (Version None)
Quarter: 2009Q4

REPORT INFORMATION
  Report Type: 
  Country: None (occurrence: None)
  Receive Date: 20091231
  Receipt Date: 20091221
  Transmission Date: 20100525
  Serious: Yes (Hospitalization, Disabling)
  Sender: FDA-Public Use
  Company Number: LT-JNJFOC-20090301898

PATIENT
  Sex: Female

DRUGS (4)
  1. REMICADE [Suspect]
     Indication: RHEUMATOID ARTHRITIS
     Route: 042
  2. PREDNISOLONE [Concomitant]
     Indication: RHEUMATOID ARTHRITIS
     Route: 048
  3. AZATHIOPRINE [Concomitant]
     Indication: RHEUMATOID ARTHRITIS
     Route: 048
  4. DICLOFENAC SODIUM [Concomitant]
     Indication: RHEUMATOID ARTHRITIS

REACTIONS (2)
  - OVARIAN NEOPLASM [None]
  - UTERINE CANCER [None]
